FAERS Safety Report 12057755 (Version 2)
Quarter: 2016Q1

REPORT INFORMATION
  Report Type: Report from Study
  Country: GB (occurrence: GB)
  Receive Date: 20160210
  Receipt Date: 20160218
  Transmission Date: 20160526
  Serious: Yes (Death, Hospitalization)
  Sender: FDA-Public Use
  Company Number: GB-ROCHE-1507024

PATIENT
  Age: 87 Year
  Sex: Female
  Weight: 52.4 kg

DRUGS (8)
  1. SIMVASTATIN. [Concomitant]
     Active Substance: SIMVASTATIN
  2. BEVACIZUMAB [Suspect]
     Active Substance: BEVACIZUMAB
     Indication: COLORECTAL CANCER METASTATIC
     Dosage: CONCENTRATE FOR SOLUTION
     Route: 042
     Dates: start: 20141008
  3. FELODIPINE. [Concomitant]
     Active Substance: FELODIPINE
  4. CAPECITABINE. [Concomitant]
     Active Substance: CAPECITABINE
     Route: 065
     Dates: start: 20141008, end: 20141022
  5. TRAMADOL. [Concomitant]
     Active Substance: TRAMADOL
  6. ADCAL D3 [Concomitant]
     Active Substance: CALCIUM CARBONATE\CHOLECALCIFEROL
     Dosage: 1500MH
     Route: 065
  7. LANSOPRAZOLE. [Concomitant]
     Active Substance: LANSOPRAZOLE
  8. LEVOTHYROXINE. [Concomitant]
     Active Substance: LEVOTHYROXINE

REACTIONS (2)
  - Large intestine perforation [Fatal]
  - Abdominal pain [Fatal]

NARRATIVE: CASE EVENT DATE: 20141008
